FAERS Safety Report 16777025 (Version 1)
Quarter: 2019Q4

REPORT INFORMATION
  Report Type: Spontaneous
  Country: US (occurrence: US)
  Receive Date: 20190905
  Receipt Date: 20190905
  Transmission Date: 20200122
  Serious: Yes (Other)
  Sender: FDA-Public Use
  Company Number: None

PATIENT
  Age: 44 Year
  Sex: Female
  Weight: 112.5 kg

DRUGS (1)
  1. DEXTROAMPHET SACCHARAT, AMPHET ASPARTATE, DEXTROAMPHET SULFATE AND AMPHET SULFAT [Suspect]
     Active Substance: AMPHETAMINE ASPARTATE\AMPHETAMINE SULFATE\DEXTROAMPHETAMINE SACCHARATE\DEXTROAMPHETAMINE SULFATE
     Indication: ATTENTION DEFICIT/HYPERACTIVITY DISORDER
     Dosage: ?          QUANTITY:.5 TABLET(S);?
     Route: 048
     Dates: start: 20190813, end: 20190905

REACTIONS (18)
  - Product substitution issue [None]
  - Hot flush [None]
  - Heart rate increased [None]
  - Product physical issue [None]
  - Dehydration [None]
  - Hyperhidrosis [None]
  - Unevaluable event [None]
  - Irritability [None]
  - Tremor [None]
  - Dizziness [None]
  - Nervousness [None]
  - Poor quality sleep [None]
  - Drug ineffective [None]
  - Bruxism [None]
  - Anxiety [None]
  - Dry mouth [None]
  - Crying [None]
  - Feeling abnormal [None]

NARRATIVE: CASE EVENT DATE: 20190905
